FAERS Safety Report 4389946-0 (Version None)
Quarter: 2004Q2

REPORT INFORMATION
  Report Type: 
  Country: None (occurrence: None)
  Receive Date: 20040630
  Receipt Date: 20040614
  Transmission Date: 20050107
  Serious: Yes (Hospitalization)
  Sender: FDA-Public Use
  Company Number: 2004CG01143

PATIENT
  Age: 54 Year
  Sex: Female

DRUGS (6)
  1. DIPRIVAN [Suspect]
     Dates: start: 20030911, end: 20030911
  2. TRACRIUM [Suspect]
     Dates: start: 20030911, end: 20030911
  3. HYPNOVEL [Suspect]
     Dates: start: 20030911, end: 20030911
  4. SUFENTA [Suspect]
     Dates: start: 20030911, end: 20030911
  5. PERFALGAN [Suspect]
     Dates: start: 20030911, end: 20030911
  6. CEFAZOLIN SODIUM [Suspect]
     Dates: start: 20030911, end: 20030911

REACTIONS (4)
  - BRADYCARDIA [None]
  - DRUG HYPERSENSITIVITY [None]
  - SHOCK [None]
  - VENTRICULAR FIBRILLATION [None]
